FAERS Safety Report 23679441 (Version 1)
Quarter: 2024Q1

REPORT INFORMATION
  Report Type: Spontaneous
  Country: LT (occurrence: LT)
  Receive Date: 20240327
  Receipt Date: 20240327
  Transmission Date: 20240410
  Serious: Yes (Other)
  Sender: FDA-Public Use
  Company Number: LT-FreseniusKabi-FK202405015

PATIENT
  Age: 67 Year
  Sex: Male

DRUGS (1)
  1. POTASSIUM CHLORIDE [Suspect]
     Active Substance: POTASSIUM CHLORIDE
     Indication: Mineral supplementation
     Dosage: FORM OF ADMIN: CONCENTRATE FOR INFUSION SOLUTION?ROUTE OF ADMIN: ORAL (PER OS)

REACTIONS (2)
  - Off label use [Unknown]
  - Diarrhoea [Unknown]
